FAERS Safety Report 18589867 (Version 1)
Quarter: 2020Q4

REPORT INFORMATION
  Report Type: Spontaneous
  Country: US (occurrence: US)
  Receive Date: 20201207
  Receipt Date: 20201207
  Transmission Date: 20210114
  Serious: Yes (Hospitalization)
  Sender: FDA-Public Use
  Company Number: None

PATIENT
  Age: 74 Year
  Sex: Female
  Weight: 68.4 kg

DRUGS (13)
  1. CAPECITABINE. [Suspect]
     Active Substance: CAPECITABINE
     Indication: BREAST CANCER FEMALE
     Dosage: ?          OTHER FREQUENCY:BID 14/21 DAYS;?
     Route: 048
     Dates: start: 20200903, end: 20201207
  2. PEPCID [Concomitant]
     Active Substance: FAMOTIDINE
  3. LATANOPROST. [Concomitant]
     Active Substance: LATANOPROST
  4. TIMOLOL. [Concomitant]
     Active Substance: TIMOLOL
  5. TUMS [Concomitant]
     Active Substance: CALCIUM CARBONATE
  6. MULTI VITAMIN [Concomitant]
     Active Substance: VITAMINS
  7. ONDANSETRON [Concomitant]
     Active Substance: ONDANSETRON
  8. NERLYNX [Concomitant]
     Active Substance: NERATINIB
  9. VITAMIN B12 [Concomitant]
     Active Substance: CYANOCOBALAMIN
  10. IMODIUM A-D [Concomitant]
     Active Substance: LOPERAMIDE HYDROCHLORIDE
  11. DICYCLOMINE [Concomitant]
     Active Substance: DICYCLOMINE HYDROCHLORIDE
  12. LISINOPRIL. [Concomitant]
     Active Substance: LISINOPRIL
  13. VITAMIN D3 [Concomitant]
     Active Substance: CHOLECALCIFEROL

REACTIONS (1)
  - Diarrhoea [None]

NARRATIVE: CASE EVENT DATE: 20201123
